FAERS Safety Report 10018639 (Version 4)
Quarter: 2014Q2

REPORT INFORMATION
  Report Type: Report from Study
  Country: AU (occurrence: AU)
  Receive Date: 20140318
  Receipt Date: 20140502
  Transmission Date: 20141212
  Serious: Yes (Hospitalization)
  Sender: FDA-Public Use
  Company Number: AU-ROCHE-1199180

PATIENT
  Age: 35 Year
  Sex: Female
  Weight: 88.6 kg

DRUGS (14)
  1. OBINUTUZUMAB [Suspect]
     Indication: NON-HODGKIN^S LYMPHOMA UNSPECIFIED HISTOLOGY INDOLENT
     Dosage: DATE OF MOST RECENT DOSE PRIOR TO SAE: 05/MAR/2013, VOLUME LAST TAKEN: 250 ML, DOSE CONCENTRATION LA
     Route: 042
     Dates: start: 20111212
  2. BENDAMUSTINE [Suspect]
     Indication: NON-HODGKIN^S LYMPHOMA UNSPECIFIED HISTOLOGY INDOLENT
     Dosage: DATE OF LAST DOSE PRIOR TO SAE: 02/MAY/2012, 180 MG
     Route: 042
     Dates: start: 20111212
  3. PARACETAMOL [Concomitant]
     Indication: PROPHYLAXIS
     Route: 065
     Dates: start: 20111212
  4. PARACETAMOL [Concomitant]
     Indication: ARTHRALGIA
     Route: 065
     Dates: start: 20130210, end: 20130217
  5. PARACETAMOL [Concomitant]
     Indication: ANALGESIC THERAPY
     Route: 065
     Dates: start: 20130205, end: 20130205
  6. LORATADINE [Concomitant]
     Indication: PROPHYLAXIS
     Route: 065
     Dates: start: 20111212
  7. PANADOL [Concomitant]
     Indication: HEADACHE
     Route: 065
     Dates: start: 20120312
  8. PANADOL [Concomitant]
     Indication: ANALGESIC THERAPY
     Route: 065
     Dates: start: 20130205, end: 20130205
  9. NUROFEN [Concomitant]
     Indication: ARTHRALGIA
     Route: 065
     Dates: start: 20130210, end: 20130217
  10. CLEXANE [Concomitant]
     Route: 065
     Dates: start: 20130206, end: 20130206
  11. METOCLOPRAMIDE [Concomitant]
     Indication: NAUSEA
     Route: 065
     Dates: start: 20130206, end: 20130206
  12. ENDONE [Concomitant]
     Indication: ANALGESIC THERAPY
     Route: 065
     Dates: start: 20130207, end: 20130207
  13. COLOXYL + SENNA [Concomitant]
     Indication: CONSTIPATION
     Route: 065
     Dates: start: 20130207, end: 20130207
  14. COLOXYL + SENNA [Concomitant]
     Route: 065
     Dates: start: 20130313, end: 20130313

REACTIONS (2)
  - Hepatitis acute [Recovered/Resolved]
  - Infusion related reaction [Recovered/Resolved]
